FAERS Safety Report 4923416-3 (Version None)
Quarter: 2006Q1

REPORT INFORMATION
  Report Type: 
  Country: None (occurrence: None)
  Receive Date: 20060227
  Receipt Date: 20060216
  Transmission Date: 20060701
  Serious: Yes (Other)
  Sender: FDA-Public Use
  Company Number: CA-JNJFOC-20060204660

PATIENT
  Sex: Female

DRUGS (2)
  1. ORTHO TRI-CYCLEN [Suspect]
     Indication: DRUG USE FOR UNKNOWN INDICATION
     Route: 048
  2. TEGRETOL [Concomitant]
     Indication: EPILEPSY

REACTIONS (3)
  - AMENORRHOEA [None]
  - ENDOMETRIOSIS [None]
  - OFF LABEL USE [None]
